FAERS Safety Report 6641675-6 (Version None)
Quarter: 2010Q1

REPORT INFORMATION
  Report Type: 
  Country: None (occurrence: None)
  Receive Date: 20100316
  Receipt Date: 20100302
  Transmission Date: 20100710
  Serious: Yes (Hospitalization, Other)
  Sender: FDA-Public Use
  Company Number: 2009-194884-NL

PATIENT
  Age: 19 Year
  Sex: Female
  Weight: 61.2356 kg

DRUGS (2)
  1. NUVARING [Suspect]
     Indication: CONTRACEPTION
     Dosage: 1 DF
     Dates: start: 20070903, end: 20080929
  2. NUVARING [Suspect]
     Indication: MENSTRUAL CYCLE MANAGEMENT
     Dosage: 1 DF
     Dates: start: 20070903, end: 20080929

REACTIONS (16)
  - ANTIPHOSPHOLIPID ANTIBODIES POSITIVE [None]
  - ASTHENIA [None]
  - CHOLELITHIASIS [None]
  - COAGULATION FACTOR VIII LEVEL INCREASED [None]
  - GENE MUTATION [None]
  - INTERNATIONAL NORMALISED RATIO INCREASED [None]
  - MIGRAINE [None]
  - MUSCLE SPASMS [None]
  - PLEURISY [None]
  - PROTEIN S DECREASED [None]
  - PROTHROMBIN TIME PROLONGED [None]
  - PRURITUS [None]
  - PULMONARY EMBOLISM [None]
  - SWELLING [None]
  - VAGINAL DISCHARGE [None]
  - VIRAL RASH [None]
